FAERS Safety Report 14155914 (Version 2)
Quarter: 2017Q4

REPORT INFORMATION
  Report Type: Spontaneous
  Country: RU (occurrence: RU)
  Receive Date: 20171103
  Receipt Date: 20171221
  Transmission Date: 20180321
  Serious: Yes (Other)
  Sender: FDA-Public Use
  Company Number: RU-ASTRAZENECA-2017SF11220

PATIENT
  Age: 51 Year
  Sex: Male
  Weight: 100 kg

DRUGS (11)
  1. ROSUVASTATIN. [Concomitant]
     Active Substance: ROSUVASTATIN
  2. BRILINTA [Suspect]
     Active Substance: TICAGRELOR
     Indication: STENT PLACEMENT
     Route: 048
     Dates: start: 20170801
  3. CONCOR [Concomitant]
     Active Substance: BISOPROLOL FUMARATE
  4. LTHYROXIN [Concomitant]
  5. CARDIKET [Concomitant]
     Active Substance: ISOSORBIDE DINITRATE
  6. ESSENTIALE FORTE [Concomitant]
  7. AMLODIPINE [Concomitant]
     Active Substance: AMLODIPINE BESYLATE
  8. DIUVER [Concomitant]
     Active Substance: TORSEMIDE
  9. GLUCOPHAGE [Concomitant]
     Active Substance: METFORMIN HYDROCHLORIDE
  10. PANANGIN [Concomitant]
     Active Substance: MAGNESIUM ASPARTATE\POTASSIUM ASPARTATE
  11. VEROSPIRON [Concomitant]
     Active Substance: SPIRONOLACTONE

REACTIONS (2)
  - Type 2 diabetes mellitus [Not Recovered/Not Resolved]
  - Angina pectoris [Not Recovered/Not Resolved]

NARRATIVE: CASE EVENT DATE: 201712
